FAERS Safety Report 17518062 (Version 1)
Quarter: 2020Q1

REPORT INFORMATION
  Report Type: Report from Study
  Country: IN (occurrence: IN)
  Receive Date: 20200309
  Receipt Date: 20200309
  Transmission Date: 20200409
  Serious: Yes (Death)
  Sender: FDA-Public Use
  Company Number: IN-ASTRAZENECA-2020SE34467

PATIENT
  Age: 72 Year
  Sex: Male

DRUGS (8)
  1. CARTINEX [Concomitant]
     Indication: CARDIAC DISORDER
     Dosage: TWO TIMES A DAY
     Route: 048
  2. ECOSPIRIN [Concomitant]
     Active Substance: ASPIRIN
     Indication: CARDIAC DISORDER
     Dosage: DAILY
     Route: 048
  3. CRESTOR [Concomitant]
     Active Substance: ROSUVASTATIN CALCIUM
     Indication: BLOOD CHOLESTEROL
     Dosage: DAILY
     Route: 048
  4. DYTOR PLUS [Concomitant]
     Indication: CARDIAC DISORDER
     Dosage: DAILY
     Route: 048
  5. GANADON TOTAL [Concomitant]
     Indication: UNEVALUABLE EVENT
     Dosage: TWO TIMES A DAY
     Route: 048
  6. MUCAIN GEL [Concomitant]
     Indication: ACID BASE BALANCE
     Dosage: THREE TIMES A DAY
     Route: 048
  7. BRILINTA [Suspect]
     Active Substance: TICAGRELOR
     Indication: CARDIAC DISORDER
     Route: 048
     Dates: start: 20200114, end: 20200211
  8. CARDACE METO [Concomitant]
     Indication: BLOOD PRESSURE MEASUREMENT
     Dosage: TWO TIMES A DAY
     Route: 048

REACTIONS (1)
  - Death [Fatal]

NARRATIVE: CASE EVENT DATE: 20200211
